FAERS Safety Report 9961194 (Version 1)
Quarter: 2014Q1

REPORT INFORMATION
  Report Type: Spontaneous
  Country: US (occurrence: None)
  Receive Date: 20140304
  Receipt Date: 20140304
  Transmission Date: 20141002
  Serious: Yes (Hospitalization)
  Sender: FDA-Public Use
  Company Number: None

PATIENT
  Age: 60 Year
  Sex: Female
  Weight: 46.2 kg

DRUGS (1)
  1. ALFA INTERFERON 2B [Suspect]
     Dosage: 4 MU

REACTIONS (2)
  - Abdominal pain [None]
  - Breast pain [None]
